FAERS Safety Report 9084534 (Version 1)
Quarter: 2013Q1

REPORT INFORMATION
  Report Type: Report from Study
  Country: US (occurrence: US)
  Receive Date: 20130131
  Receipt Date: 20130131
  Transmission Date: 20140127
  Serious: No
  Sender: FDA-Public Use
  Company Number: US-ABBOTT-12P-163-0993098-00

PATIENT
  Age: 70 Year
  Sex: Female

DRUGS (6)
  1. HUMIRA [Suspect]
     Indication: RHEUMATOID ARTHRITIS
  2. DIOVAN [Concomitant]
     Indication: HYPERTENSION
  3. METOPROLOL [Concomitant]
  4. COUMADIN [Concomitant]
     Indication: PRODUCT USED FOR UNKNOWN INDICATION
     Dosage: 5MG ON SUN, TUE, TH, AND SAT; AND 2.5MG ON M, W, AND F
  5. ADVAIR HFA [Concomitant]
     Dosage: ONCE IN THE P.M.
  6. MULTAG [Concomitant]
     Indication: CARDIAC DISORDER

REACTIONS (5)
  - Device malfunction [Unknown]
  - Device malfunction [Unknown]
  - Incorrect dose administered [Unknown]
  - Incorrect dose administered [Recovering/Resolving]
  - Pain [Unknown]
